FAERS Safety Report 9366545 (Version 1)
Quarter: 2013Q2

REPORT INFORMATION
  Report Type: Spontaneous
  Country: US (occurrence: US)
  Receive Date: 20130625
  Receipt Date: 20130625
  Transmission Date: 20140414
  Serious: No
  Sender: FDA-Public Use
  Company Number: US-009507513-1306USA004377

PATIENT
  Sex: Male

DRUGS (3)
  1. VICTRELIS [Suspect]
     Indication: HEPATITIS C
     Dosage: 800 MG, TID
     Route: 048
     Dates: start: 2013
  2. PEGASYS [Suspect]
     Dosage: 180 MICROGRAM, QW
  3. RIBAPAK [Suspect]
     Dosage: 600 MG IN THE MORNING AND 400 MG IN THE EVENING

REACTIONS (3)
  - Melanocytic naevus [Unknown]
  - Dry skin [Unknown]
  - Mole excision [Unknown]
